FAERS Safety Report 6068011-0 (Version None)
Quarter: 2009Q1

REPORT INFORMATION
  Report Type: 
  Country: None (occurrence: None)
  Receive Date: 20090206
  Receipt Date: 20090202
  Transmission Date: 20090719
  Serious: Yes (Death, Other)
  Sender: FDA-Public Use
  Company Number: JP-BRISTOL-MYERS SQUIBB COMPANY-14492490

PATIENT
  Age: 67 Year
  Sex: Female

DRUGS (2)
  1. TAXOL [Suspect]
     Indication: BREAST CANCER
     Dosage: THERAPY GIVEN FROM 20SEP08-UNK,10DEC08-05JAN09
     Route: 041
     Dates: start: 20090105, end: 20090105
  2. ADRIACIN [Suspect]
     Indication: BREAST CANCER
     Dosage: THERAPY STARTED ON 10DEC08
     Route: 041
     Dates: start: 20090105, end: 20090105

REACTIONS (3)
  - ARRHYTHMIA [None]
  - CEREBROVASCULAR DISORDER [None]
  - VOMITING [None]
